FAERS Safety Report 6100078-3 (Version None)
Quarter: 2009Q1

REPORT INFORMATION
  Report Type: 
  Country: None (occurrence: None)
  Receive Date: 20090303
  Receipt Date: 20090225
  Transmission Date: 20090719
  Serious: Yes (Other)
  Sender: FDA-Public Use
  Company Number: B0562194A

PATIENT
  Age: 67 Year
  Sex: Female

DRUGS (5)
  1. AUGMENTIN '125' [Suspect]
     Indication: URINARY TRACT INFECTION
     Dosage: 2G PER DAY
     Route: 048
     Dates: start: 20090127, end: 20090130
  2. OMEPRAZOLE [Concomitant]
     Dosage: 20MG PER DAY
     Route: 048
  3. SOTALOL HCL [Concomitant]
     Dosage: 80MG PER DAY
     Route: 048
  4. ATORVASTATIN [Concomitant]
     Dosage: 20MG PER DAY
     Route: 048
  5. ENOXAPARIN SODIUM [Concomitant]
     Route: 058

REACTIONS (2)
  - NEUTROPENIA [None]
  - RASH [None]
